FAERS Safety Report 5038974-0 (Version None)
Quarter: 2006Q2

REPORT INFORMATION
  Report Type: 
  Country: None (occurrence: None)
  Receive Date: 20060628
  Receipt Date: 20060628
  Transmission Date: 20061013
  Serious: No
  Sender: FDA-Public Use
  Company Number: None

PATIENT
  Age: 95 Year
  Sex: Female

DRUGS (1)
  1. SYNTHROID [Suspect]
     Dosage: 75 MCG ONE IV MONTH
     Route: 042

REACTIONS (3)
  - DIZZINESS [None]
  - MUSCLE SPASMS [None]
  - PRURITUS [None]
